FAERS Safety Report 25691360 (Version 1)
Quarter: 2025Q3

REPORT INFORMATION
  Report Type: Spontaneous
  Country: US (occurrence: None)
  Receive Date: 20250818
  Receipt Date: 20250818
  Transmission Date: 20251020
  Serious: Yes (Death)
  Sender: FDA-CTU
  Company Number: None

PATIENT
  Age: 58 Year
  Sex: Female

DRUGS (3)
  1. DOXYCYCLINE [Suspect]
     Active Substance: DOXYCYCLINE
  2. LEVOFLOXACIN [Suspect]
     Active Substance: LEVOFLOXACIN
  3. CEFDINIR [Suspect]
     Active Substance: CEFDINIR

REACTIONS (9)
  - Rash [None]
  - Wound secretion [None]
  - Acute kidney injury [None]
  - Haemodialysis [None]
  - Glomerulonephritis [None]
  - Anaemia [None]
  - Septic shock [None]
  - Urinary tract infection [None]
  - Respiratory failure [None]

NARRATIVE: CASE EVENT DATE: 20240311
